FAERS Safety Report 24877536 (Version 1)
Quarter: 2025Q1

REPORT INFORMATION
  Report Type: Spontaneous
  Country: CN (occurrence: CN)
  Receive Date: 20250123
  Receipt Date: 20250123
  Transmission Date: 20250409
  Serious: Yes (Other)
  Sender: SANOFI AVENTIS
  Company Number: CN-SA-2025SA019088

PATIENT
  Age: 78 Year
  Sex: Female
  Weight: 60 kg

DRUGS (1)
  1. CLOPIDOGREL BISULFATE [Suspect]
     Active Substance: CLOPIDOGREL BISULFATE
     Indication: Platelet aggregation inhibition
     Dosage: 75 MG, QD
     Route: 048
     Dates: start: 20250102, end: 20250102

REACTIONS (2)
  - Asphyxia [Recovered/Resolved]
  - Palpitations [Recovered/Resolved]

NARRATIVE: CASE EVENT DATE: 20250102
